FAERS Safety Report 11910980 (Version 7)
Quarter: 2016Q4

REPORT INFORMATION
  Report Type: Report from Study
  Country: None (occurrence: GB)
  Receive Date: 20160112
  Receipt Date: 20161021
  Transmission Date: 20170206
  Serious: Yes (Death, Hospitalization, Other)
  Sender: FDA-Public Use
  Company Number: GB-ABBVIE-16K-167-1534497-00

PATIENT
  Sex: Male

DRUGS (1)
  1. HUMIRA [Suspect]
     Active Substance: ADALIMUMAB
     Indication: PSORIATIC ARTHROPATHY
     Route: 058
     Dates: start: 2009

REACTIONS (23)
  - Muscle atrophy [Unknown]
  - Insomnia [Unknown]
  - Asthenia [Fatal]
  - Anal incontinence [Unknown]
  - Eye discharge [Unknown]
  - Cough [Unknown]
  - Balance disorder [Unknown]
  - Myotonic dystrophy [Fatal]
  - Fall [Fatal]
  - Lower respiratory tract infection [Unknown]
  - Cholelithiasis [Unknown]
  - Eye infection [Unknown]
  - Mental disorder [Unknown]
  - Cervical vertebral fracture [Unknown]
  - Hypophagia [Unknown]
  - Decreased appetite [Unknown]
  - Flatulence [Unknown]
  - Pneumonia [Fatal]
  - Weight decreased [Fatal]
  - Dyspnoea [Unknown]
  - Malaise [Unknown]
  - General physical health deterioration [Unknown]
  - Mobility decreased [Unknown]

NARRATIVE: CASE EVENT DATE: 2012
